FAERS Safety Report 9232767 (Version 1)
Quarter: 2013Q1

REPORT INFORMATION
  Report Type: Spontaneous
  Country: US (occurrence: None)
  Receive Date: 20121031
  Receipt Date: 20121031
  Transmission Date: 20140127
  Serious: No
  Sender: FDA-Public Use
  Company Number: PHEH2012US011846

PATIENT
  Age: 52 Year
  Sex: Female

DRUGS (3)
  1. GILENYA (FTY) CAPSULE, 0.5MG [Suspect]
     Indication: MULTIPLE SCLEROSIS
     Route: 048
     Dates: start: 20120607
  2. AVONEX (INTERFERON BETA -1A) [Concomitant]
  3. FAMPRIDINE (FAMPRIDINE) [Concomitant]

REACTIONS (3)
  - Nausea [None]
  - Arthropathy [None]
  - Fatigue [None]
